FAERS Safety Report 25589310 (Version 1)
Quarter: 2025Q3

REPORT INFORMATION
  Report Type: Spontaneous
  Country: EU (occurrence: EU)
  Receive Date: 20250722
  Receipt Date: 20250722
  Transmission Date: 20251020
  Serious: Yes (Other)
  Sender: CHEPLAPHARM
  Company Number: None

PATIENT
  Age: 29 Year
  Sex: Male

DRUGS (8)
  1. CLONAZEPAM [Suspect]
     Active Substance: CLONAZEPAM
  2. CANNABIS SATIVA SUBSP. INDICA TOP [Suspect]
     Active Substance: CANNABIS SATIVA SUBSP. INDICA TOP
  3. COCAINE [Suspect]
     Active Substance: COCAINE
  4. COCAETHYLENE [Suspect]
     Active Substance: COCAETHYLENE
  5. ALCOHOL [Suspect]
     Active Substance: ALCOHOL
  6. PREGABALIN [Suspect]
     Active Substance: PREGABALIN
  7. GABAPENTIN [Suspect]
     Active Substance: GABAPENTIN
  8. OXAZEPAM [Suspect]
     Active Substance: OXAZEPAM

REACTIONS (4)
  - Drug use disorder [Unknown]
  - Asthenia [Recovered/Resolved]
  - Hypokalaemia [Recovered/Resolved]
  - Chest pain [Recovered/Resolved]

NARRATIVE: CASE EVENT DATE: 20250426
